FAERS Safety Report 4448763-3 (Version None)
Quarter: 2004Q3

REPORT INFORMATION
  Report Type: 
  Country: None (occurrence: None)
  Receive Date: 20040909
  Receipt Date: 20030301
  Transmission Date: 20050211
  Serious: Yes (Hospitalization)
  Sender: FDA-Public Use
  Company Number: M2003.4579

PATIENT
  Age: 80 Year
  Sex: Female

DRUGS (7)
  1. METRONIDAZOLE (METRONIDAZOLE), UNK MANUFACTURER [Suspect]
  2. CEFTRIAXONE (CEFTRIAXONE), UNK MANUFACTURER [Suspect]
  3. FUROSEMIDE [Concomitant]
  4. CINNARIZINE (CINNARIZINE) [Concomitant]
  5. LORAZEPAM [Concomitant]
  6. ACETAMINOPHEN [Concomitant]
  7. CODEIN PHOSPHATE (CODEIN PHOSPHATE) [Concomitant]

REACTIONS (3)
  - LINEAR IGA DISEASE [None]
  - SKIN HYPERPIGMENTATION [None]
  - SKIN TEST POSITIVE [None]
